FAERS Safety Report 5224105-0 (Version None)
Quarter: 2007Q1

REPORT INFORMATION
  Report Type: 
  Country: None (occurrence: None)
  Receive Date: 20070130
  Receipt Date: 20070119
  Transmission Date: 20070707
  Serious: Yes (Hospitalization, Disabling)
  Sender: FDA-Public Use
  Company Number: HQWYE628526OCT06

PATIENT
  Sex: Female
  Weight: 99.88 kg

DRUGS (9)
  1. EFFEXOR XR [Suspect]
     Indication: DEPRESSION
     Dosage: UNKNOWN
     Route: 048
     Dates: start: 20010101, end: 20060601
  2. EFFEXOR XR [Suspect]
     Route: 048
  3. EFFEXOR XR [Suspect]
     Dosage: ^DECREASING HER DOSE BY 75 MG INCREMENTS OVER 1 WEEK^
     Route: 048
     Dates: start: 20060601, end: 20060601
  4. EFFEXOR XR [Suspect]
     Dosage: ^75 MG FOR A DAY AND A HALF^
     Route: 048
     Dates: start: 20060901, end: 20060901
  5. EFFEXOR XR [Suspect]
     Route: 048
     Dates: start: 20060101, end: 20060101
  6. LISINOPRIL [Concomitant]
     Indication: HYPERTENSION
  7. MEVACOR [Concomitant]
     Indication: BLOOD CHOLESTEROL INCREASED
  8. LEVOTHROID [Concomitant]
     Indication: THYROID CANCER
  9. HYDROCHLOROTHIAZIDE [Concomitant]
     Indication: HYPERTENSION

REACTIONS (6)
  - AKATHISIA [None]
  - ANXIETY [None]
  - DRUG WITHDRAWAL SYNDROME [None]
  - MOVEMENT DISORDER [None]
  - RESTLESSNESS [None]
  - SCREAMING [None]
